FAERS Safety Report 8376696 (Version 2)
Quarter: 2013Q1

REPORT INFORMATION
  Report Type: Report from Study
  Country: US (occurrence: US)
  Receive Date: 20120129
  Receipt Date: 20130129
  Transmission Date: 20140127
  Serious: No
  Sender: FDA-Public Use
  Company Number: US-ABBOTT-11P-163-0880379-00

PATIENT
  Age: 55 None
  Sex: Female
  Weight: 98.06 kg

DRUGS (40)
  1. HUMIRA 40 MG/0.8 ML PEN [Suspect]
     Indication: CROHN^S DISEASE
     Dates: start: 20111104
  2. HUMIRA 40 MG/0.8 ML PEN [Suspect]
     Indication: RHEUMATOID ARTHRITIS
  3. MELOXICAM [Suspect]
     Indication: ARTHRALGIA
  4. MELOXICAM [Suspect]
     Indication: INFLAMMATION
  5. ALBUTEROL [Suspect]
     Indication: CHRONIC OBSTRUCTIVE PULMONARY DISEASE
     Route: 048
  6. REGLAN [Concomitant]
     Indication: NAUSEA
  7. PROTONIX [Concomitant]
     Indication: PRODUCT USED FOR UNKNOWN INDICATION
  8. AMLODIPINE [Concomitant]
     Indication: HYPERTENSION
  9. PRAVASTATIN SODIUM [Concomitant]
     Indication: BLOOD CHOLESTEROL INCREASED
  10. POTASSIUM [Concomitant]
     Indication: ELECTROLYTE SUBSTITUTION THERAPY
  11. LASIX [Concomitant]
     Indication: HYPERTENSION
  12. SULFASALAZINE [Concomitant]
     Indication: CROHN^S DISEASE
  13. MIRAPEX [Concomitant]
     Indication: RHEUMATOID ARTHRITIS
  14. MIRAPEX [Concomitant]
     Indication: PAIN IN EXTREMITY
  15. IMURAN [Concomitant]
     Indication: CROHN^S DISEASE
  16. IMURAN [Concomitant]
     Indication: RHEUMATOID ARTHRITIS
  17. VISTARIL [Concomitant]
     Indication: NAUSEA
  18. VISTARIL [Concomitant]
     Indication: ANXIETY
  19. PREDNISONE [Concomitant]
     Indication: RHEUMATOID ARTHRITIS
  20. PREDNISONE [Concomitant]
     Indication: CROHN^S DISEASE
  21. REVATION [Concomitant]
     Indication: PULMONARY HYPERTENSION
  22. MIRTAZAPINE [Concomitant]
     Indication: ANTIDEPRESSANT THERAPY
  23. METOLAZONE [Concomitant]
     Indication: SWELLING
  24. METHIMAZOLE [Concomitant]
     Indication: THYROID DISORDER
  25. COMBIVENT [Concomitant]
     Indication: CHRONIC OBSTRUCTIVE PULMONARY DISEASE
  26. ADVAIR [Concomitant]
     Indication: ASTHMA
  27. ADVAIR [Concomitant]
     Indication: CHRONIC OBSTRUCTIVE PULMONARY DISEASE
  28. XANAX [Concomitant]
     Indication: ANXIETY
  29. THYROID PILL [Concomitant]
     Indication: BASEDOW^S DISEASE
  30. REGATIO [Concomitant]
     Indication: PULMONARY HYPERTENSION
  31. FUROSEMIDE [Concomitant]
     Indication: FLUID RETENTION
  32. DELARREST [Concomitant]
     Indication: PULMONARY HYPERTENSION
  33. DELARREST [Concomitant]
     Indication: CHRONIC OBSTRUCTIVE PULMONARY DISEASE
  34. DELARREST [Concomitant]
     Indication: EMPHYSEMA
  35. TAPAZOLE [Concomitant]
     Indication: THYROID DISORDER
  36. TYLENOL 4 [Concomitant]
     Indication: PAIN
  37. CRESTOR [Concomitant]
     Indication: HYPERLIPIDAEMIA
  38. SPIREVA [Concomitant]
     Indication: CHRONIC OBSTRUCTIVE PULMONARY DISEASE
  39. NYSTATIN [Concomitant]
     Indication: CANDIDA INFECTION
  40. OXYGEN [Concomitant]
     Indication: CHRONIC OBSTRUCTIVE PULMONARY DISEASE

REACTIONS (3)
  - Arthralgia [Not Recovered/Not Resolved]
  - Drug ineffective [Not Recovered/Not Resolved]
  - Headache [Not Recovered/Not Resolved]
